FAERS Safety Report 21603093 (Version 1)
Quarter: 2022Q4

REPORT INFORMATION
  Report Type: Spontaneous
  Country: US (occurrence: US)
  Receive Date: 20221116
  Receipt Date: 20221116
  Transmission Date: 20230113
  Serious: No
  Sender: FDA-Public Use
  Company Number: US-OptiNose US, Inc-2022OPT000061

PATIENT
  Age: 58 Year
  Sex: Male

DRUGS (5)
  1. XHANCE [Suspect]
     Active Substance: FLUTICASONE PROPIONATE
     Indication: Nasal polyps
     Route: 045
     Dates: start: 20211024, end: 20220323
  2. XHANCE [Suspect]
     Active Substance: FLUTICASONE PROPIONATE
     Indication: Chronic sinusitis
  3. PRAVASTATIN [Concomitant]
     Active Substance: PRAVASTATIN
     Indication: Blood cholesterol abnormal
     Route: 065
  4. ZYRTEC [Concomitant]
     Active Substance: CETIRIZINE HYDROCHLORIDE
     Indication: Hypersensitivity
     Route: 065
  5. ENTERO CR [Concomitant]
     Indication: Product used for unknown indication
     Route: 065

REACTIONS (1)
  - Flushing [Recovering/Resolving]

NARRATIVE: CASE EVENT DATE: 20211024
